FAERS Safety Report 9450029 (Version 6)
Quarter: 2013Q4

REPORT INFORMATION
  Report Type: Spontaneous
  Country: US (occurrence: US)
  Receive Date: 20130809
  Receipt Date: 20131210
  Transmission Date: 20140711
  Serious: Yes (Other)
  Sender: FDA-Public Use
  Company Number: US-PFIZER INC-2013230457

PATIENT
  Age: 58 Year
  Sex: Female
  Weight: 90.7 kg

DRUGS (38)
  1. LYRICA [Suspect]
     Indication: FIBROMYALGIA
     Dosage: 100MG DAILY
     Dates: start: 201305
  2. LYRICA [Suspect]
     Indication: NEUROPATHY PERIPHERAL
     Dosage: 150 MG, 2-3 TIMES A DAY
     Route: 048
     Dates: start: 20130703, end: 20130823
  3. LYRICA [Suspect]
     Dosage: 150 MG, 3X/DAY
     Route: 048
     Dates: start: 201309
  4. NEURONTIN [Suspect]
     Indication: FIBROMYALGIA
     Dosage: 150 MG, 3X/DAY
     Dates: end: 201307
  5. NEURONTIN [Suspect]
     Indication: NEUROPATHY PERIPHERAL
  6. GABAPENTIN [Suspect]
     Indication: FIBROMYALGIA
     Dosage: 300 MG, 3X/DAY
     Route: 048
  7. GABAPENTIN [Suspect]
     Indication: NEUROPATHY PERIPHERAL
     Dosage: 400 MG, 3X/DAY
     Route: 048
  8. GABAPENTIN [Suspect]
     Dosage: 800 MG, 3X/DAY
     Route: 048
     Dates: end: 2013
  9. CLEARLAX [Concomitant]
     Indication: IRRITABLE BOWEL SYNDROME
     Dosage: AS NEEDED
  10. CLEARLAX [Concomitant]
     Indication: CONSTIPATION
  11. FIBERCON [Concomitant]
     Indication: IRRITABLE BOWEL SYNDROME
     Dosage: 5 DF, 1X/DAY
  12. FIBERCON [Concomitant]
     Indication: CONSTIPATION
  13. FIBERCON [Concomitant]
     Indication: IRRITABLE BOWEL SYNDROME
  14. GLUCOSAMINE HYDROCHLORIDE [Concomitant]
     Indication: ARTHROPATHY
     Dosage: 1500MG DAILY
  15. VITAMIN D [Concomitant]
     Dosage: 1000 MG, 1X/DAY
  16. ASPIRIN [Concomitant]
     Indication: THROMBOSIS
     Dosage: 81MG DAILY
  17. PRILOSEC [Concomitant]
     Indication: IRRITABLE BOWEL SYNDROME
     Dosage: UNK
  18. OS-CAL [Concomitant]
     Indication: MINERAL SUPPLEMENTATION
     Dosage: UNK
     Route: 048
  19. OS-CAL [Concomitant]
     Indication: OSTEOPOROSIS
  20. CLONAZEPAM [Concomitant]
     Indication: NERVOUS SYSTEM DISORDER
     Dosage: 2MG IN A DAY (2 TABLET OF 0.5MG IN MORNING, 1 TABLET OF 0.5MG AT NOON AND 1 TABLET OF 0.5MG AT BED)
     Route: 048
  21. CLONAZEPAM [Concomitant]
     Indication: INSOMNIA
  22. CLONAZEPAM [Concomitant]
     Indication: ANXIETY
  23. CITALOPRAM [Concomitant]
     Indication: ANXIETY
     Dosage: 40 MG, 1X/DAY
     Dates: start: 20120710, end: 201304
  24. DICYCLOMINE [Concomitant]
     Indication: IRRITABLE BOWEL SYNDROME
     Dosage: 10MG DAILY
  25. CYCLOBENZAPRINE [Concomitant]
     Indication: PAIN
     Dosage: 10 MG, 3X/DAY
     Route: 048
  26. CYCLOBENZAPRINE [Concomitant]
     Dosage: 10 MG, UNK
  27. PRAVASTATIN [Concomitant]
     Indication: BLOOD CHOLESTEROL INCREASED
     Dosage: 80 MG (BY TAKING 2 TABLETS OF 40MG ONCE A DAY), 1X/DAY
  28. ACETAMINOPHEN W/CODEINE [Concomitant]
     Indication: PAIN
     Dosage: [ACETAMINOPHEN 300 MG]/[CODEINE 30 MG], AS NEEDED
     Route: 048
  29. PILOCARPINE [Concomitant]
     Dosage: 5 MG, 3X/DAY
  30. SPIRONOLACTONE [Concomitant]
     Indication: SWELLING
     Dosage: 100 MG, 1X/DAY
     Route: 048
  31. LEVOTHYROXINE [Concomitant]
     Indication: HYPOTHYROIDISM
     Dosage: 50MCG DAILY
     Route: 048
  32. AMITRIPTYLINE [Concomitant]
     Dosage: 10 MG, 1X/DAY
     Route: 048
  33. DETROL LA [Concomitant]
     Indication: HYPERTONIC BLADDER
     Dosage: 4 MG, 1X/DAY
  34. WARFARIN [Concomitant]
     Indication: ANTICOAGULANT THERAPY
     Dosage: UNK
  35. FUROSEMIDE [Concomitant]
     Dosage: 20 MG, UNK
  36. HYDROCODONE W/ACETAMINOPHEN [Concomitant]
     Indication: PAIN
     Dosage: UNK
  37. CALCIUM [Concomitant]
     Dosage: 500 MG, UNK
  38. BABY ASPIRIN [Concomitant]
     Indication: THROMBOSIS
     Dosage: 81 MG, 1X/DAY

REACTIONS (11)
  - Off label use [Unknown]
  - Intentional drug misuse [Unknown]
  - Weight increased [Not Recovered/Not Resolved]
  - Oedema [Recovering/Resolving]
  - Renal disorder [Unknown]
  - Fall [Recovered/Resolved]
  - Back pain [Unknown]
  - Drug ineffective [Unknown]
  - Drug ineffective for unapproved indication [Unknown]
  - Musculoskeletal pain [Not Recovered/Not Resolved]
  - Pain in extremity [Not Recovered/Not Resolved]
